FAERS Safety Report 5419049-5 (Version None)
Quarter: 2007Q3

REPORT INFORMATION
  Report Type: 
  Country: None (occurrence: None)
  Receive Date: 20070820
  Receipt Date: 20070814
  Transmission Date: 20080115
  Serious: Yes (Other)
  Sender: FDA-Public Use
  Company Number: PHEH2006US01241

PATIENT
  Age: 54 Year
  Sex: Female
  Weight: 58.956 kg

DRUGS (11)
  1. AREDIA [Suspect]
     Indication: METASTASES TO BONE
     Dosage: UNK,UNK
  2. ZOMETA [Suspect]
     Indication: METASTASES TO BONE
     Dosage: UNK,UNK
     Dates: end: 20050926
  3. VITAMIN CAP [Concomitant]
  4. FEMARA [Concomitant]
  5. LASIX [Concomitant]
  6. PRINIVIL [Concomitant]
  7. COUMADIN [Concomitant]
  8. LORTAB [Concomitant]
  9. NAPROXEN [Concomitant]
  10. OXYCONTIN [Concomitant]
  11. ASPIRIN [Concomitant]

REACTIONS (11)
  - BONE DISORDER [None]
  - FALL [None]
  - FEMUR FRACTURE [None]
  - HIP ARTHROPLASTY [None]
  - ORAL SURGERY [None]
  - OSTEONECROSIS [None]
  - PERIODONTAL DISEASE [None]
  - PERIODONTITIS [None]
  - PRIMARY SEQUESTRUM [None]
  - SINUSITIS [None]
  - TOOTH ABSCESS [None]
